FAERS Safety Report 4315619-6 (Version None)
Quarter: 2004Q1

REPORT INFORMATION
  Report Type: 
  Country: None (occurrence: None)
  Receive Date: 20040311
  Receipt Date: 20040301
  Transmission Date: 20041129
  Serious: Yes (Hospitalization)
  Sender: FDA-Public Use
  Company Number: US-GLAXOSMITHKLINE-A0502000A

PATIENT
  Sex: Male

DRUGS (4)
  1. PAXIL [Suspect]
     Route: 048
  2. ZOLOFT [Suspect]
     Route: 048
  3. EFFEXOR [Suspect]
     Route: 048
  4. RITALIN [Suspect]
     Route: 048

REACTIONS (10)
  - ANGER [None]
  - DEPRESSION [None]
  - DIABETES MELLITUS [None]
  - FEAR [None]
  - FEELING ABNORMAL [None]
  - HOMICIDAL IDEATION [None]
  - HYPERTENSION [None]
  - NIGHTMARE [None]
  - SUICIDAL IDEATION [None]
  - SUICIDE ATTEMPT [None]
